FAERS Safety Report 19975123 (Version 1)
Quarter: 2021Q4

REPORT INFORMATION
  Report Type: Spontaneous
  Country: JP (occurrence: JP)
  Receive Date: 20211020
  Receipt Date: 20211020
  Transmission Date: 20220303
  Serious: Yes (Hospitalization, Other)
  Sender: FDA-Public Use
  Company Number: JP-TEVA-2021-JP-1966556

PATIENT
  Age: 83 Year
  Sex: Female

DRUGS (1)
  1. RABEPRAZOLE [Suspect]
     Active Substance: RABEPRAZOLE
     Indication: Gastrooesophageal reflux disease
     Dosage: 10 MILLIGRAM DAILY;
     Route: 065

REACTIONS (2)
  - Gastric polyps [Recovered/Resolved]
  - Hypergastrinaemia [Unknown]

NARRATIVE: CASE EVENT DATE: 20140101
